FAERS Safety Report 4530478-4 (Version None)
Quarter: 2004Q4

REPORT INFORMATION
  Report Type: 
  Country: None (occurrence: None)
  Receive Date: 20041216
  Receipt Date: 20041210
  Transmission Date: 20050328
  Serious: Yes (Life-Threatening)
  Sender: FDA-Public Use
  Company Number: TCI2002A01109

PATIENT
  Age: 71 Year
  Sex: Male

DRUGS (3)
  1. LEUPROLIDE ACETATE [Suspect]
     Indication: PROSTATE CANCER
     Dosage: 3.75 MG (3.75 MG, 1 IN 28 D) SUBCUTANEOUS
     Route: 058
     Dates: start: 20010809, end: 20020319
  2. CASODEX [Suspect]
     Indication: PROSTATE CANCER
     Dosage: 80 MG (80 MG, 1 D) PER ORAL
     Route: 048
     Dates: start: 20010726, end: 20020404
  3. NORVASC [Concomitant]

REACTIONS (20)
  - ALANINE AMINOTRANSFERASE INCREASED [None]
  - ARTHRALGIA [None]
  - ASPARTATE AMINOTRANSFERASE INCREASED [None]
  - ASTHENIA [None]
  - BLOOD ALKALINE PHOSPHATASE INCREASED [None]
  - BLOOD CREATINE PHOSPHOKINASE INCREASED [None]
  - BLOOD LACTATE DEHYDROGENASE INCREASED [None]
  - C-REACTIVE PROTEIN INCREASED [None]
  - CEREBROVASCULAR DISORDER [None]
  - ENDOPHTHALMITIS [None]
  - HEPATIC FUNCTION ABNORMAL [None]
  - INFECTION IN AN IMMUNOCOMPROMISED HOST [None]
  - METASTASES TO BONE [None]
  - METASTASES TO CENTRAL NERVOUS SYSTEM [None]
  - MYALGIA [None]
  - OEDEMA [None]
  - PYREXIA [None]
  - RENAL IMPAIRMENT [None]
  - VITREOUS OPACITIES [None]
  - WHITE BLOOD CELL COUNT INCREASED [None]
